FAERS Safety Report 9386398 (Version 1)
Quarter: 2013Q3

REPORT INFORMATION
  Report Type: Spontaneous
  Country: FR (occurrence: FR)
  Receive Date: 20130708
  Receipt Date: 20130708
  Transmission Date: 20140515
  Serious: Yes (Hospitalization)
  Sender: FDA-Public Use
  Company Number: FR-009507513-1307FRA000882

PATIENT
  Age: 78 Year
  Sex: Female

DRUGS (6)
  1. FOSAVANCE [Suspect]
     Dosage: 1 DF, QW
     Route: 048
     Dates: start: 2005, end: 20110127
  2. FUROSEMIDE [Interacting]
     Dosage: 20 MG, QD
     Route: 048
  3. ARICEPT [Concomitant]
  4. DIFFU-K [Concomitant]
  5. CALCIPRAT [Concomitant]
  6. SEROPLEX [Concomitant]

REACTIONS (3)
  - Malaise [Recovered/Resolved]
  - Loss of consciousness [Recovered/Resolved]
  - Atrial fibrillation [Recovered/Resolved]
